FAERS Safety Report 12762660 (Version 2)
Quarter: 2016Q3

REPORT INFORMATION
  Report Type: Spontaneous
  Country: US (occurrence: US)
  Receive Date: 20160920
  Receipt Date: 20160930
  Transmission Date: 20161109
  Serious: Yes (Hospitalization, Other)
  Sender: FDA-Public Use
  Company Number: US-CELGENEUS-USA-2016093952

PATIENT
  Sex: Female
  Weight: 108.96 kg

DRUGS (5)
  1. REVLIMID [Suspect]
     Active Substance: LENALIDOMIDE
     Dosage: 20 MILLIGRAM
     Route: 048
     Dates: start: 20160606
  2. REVLIMID [Suspect]
     Active Substance: LENALIDOMIDE
     Indication: PLASMA CELL MYELOMA
     Route: 048
     Dates: start: 201008
  3. DEXAMETHASONE. [Concomitant]
     Active Substance: DEXAMETHASONE
     Indication: PLASMA CELL MYELOMA
     Route: 048
     Dates: start: 20160606
  4. NINLARO [Concomitant]
     Active Substance: IXAZOMIB
     Indication: PLASMA CELL MYELOMA
     Route: 048
     Dates: start: 20160606
  5. REVLIMID [Suspect]
     Active Substance: LENALIDOMIDE
     Dosage: 15-20MG
     Route: 048
     Dates: start: 201211

REACTIONS (8)
  - Blood magnesium decreased [Unknown]
  - Hip fracture [Unknown]
  - Blood potassium decreased [Unknown]
  - Colitis [Unknown]
  - Decreased appetite [Unknown]
  - White blood cell count decreased [Unknown]
  - Weight decreased [Unknown]
  - Nausea [Not Recovered/Not Resolved]

NARRATIVE: CASE EVENT DATE: 2016
